FAERS Safety Report 7198042-9 (Version None)
Quarter: 2010Q4

REPORT INFORMATION
  Report Type: 
  Country: None (occurrence: None)
  Receive Date: 20101227
  Receipt Date: 20101222
  Transmission Date: 20110411
  Serious: Yes (Death, Hospitalization)
  Sender: FDA-Public Use
  Company Number: IT-ROCHE-749779

PATIENT
  Sex: Female
  Weight: 68 kg

DRUGS (11)
  1. TRASTUZUMAB [Suspect]
     Route: 065
     Dates: start: 20071212, end: 20081210
  2. PAROXETINE HCL [Concomitant]
     Indication: ANTIDEPRESSANT THERAPY
     Dosage: FREQUENCY:SID
     Route: 048
     Dates: start: 20100215, end: 20100227
  3. TRIAZOLAM [Concomitant]
     Indication: ANTIDEPRESSANT THERAPY
     Dosage: FREQUENCY:SID
     Route: 048
     Dates: start: 20100215, end: 20100217
  4. TAVOR [Concomitant]
     Indication: ANTIDEPRESSANT THERAPY
     Dosage: FREQUENCY:SID
     Route: 048
     Dates: start: 20100215, end: 20100227
  5. MORPHINE [Concomitant]
     Indication: PAIN
     Route: 058
     Dates: start: 20100226, end: 20100227
  6. METILPREDNISOLONE [Concomitant]
     Indication: PAIN
     Route: 042
     Dates: start: 20100226, end: 20100228
  7. OMEPRAZOLE [Concomitant]
     Indication: PROPHYLAXIS
     Dosage: FREQUENCY: SID
     Route: 048
     Dates: start: 20100215, end: 20100226
  8. PARACETAMOL/CODEINE PHOSPHATE/ CAFFEINE ANHYDRATE/MEPROBAMATE [Concomitant]
     Dosage: DRUG NAME: PARACETAMOL/ CODEIN DOSE:500MG+30 MG
     Route: 048
     Dates: start: 20100215, end: 20100227
  9. AMLODIPINE [Concomitant]
     Indication: HYPERTENSION
     Dosage: FREQUENCY: SID
     Route: 048
     Dates: start: 20100216, end: 20100227
  10. RAMIPRIL [Concomitant]
     Dosage: FREQUENCY: SID
     Route: 048
     Dates: start: 20100218, end: 20100227
  11. ANASTROZOLE [Concomitant]
     Indication: PAIN
     Route: 042
     Dates: start: 20100226, end: 20100228

REACTIONS (4)
  - DISEASE PROGRESSION [None]
  - GENERAL PHYSICAL HEALTH DETERIORATION [None]
  - METASTASES TO LIVER [None]
  - METASTASES TO LUNG [None]
